FAERS Safety Report 10606174 (Version 1)
Quarter: 2014Q4

REPORT INFORMATION
  Report Type: Spontaneous
  Country: FR (occurrence: FR)
  Receive Date: 20141125
  Receipt Date: 20141125
  Transmission Date: 20150529
  Serious: Yes (Hospitalization)
  Sender: FDA-Public Use
  Company Number: FR-009507513-1411FRA010544

PATIENT
  Age: 56 Year
  Sex: Female

DRUGS (13)
  1. METEOXANE (PHLOROGLUCINOL (+) SIMETHICONE) [Concomitant]
  2. INEXIUM (ESOMEPRAZOLE SODIUM) [Concomitant]
     Active Substance: ESOMEPRAZOLE
  3. OLMETEC [Concomitant]
     Active Substance: OLMESARTAN MEDOXOMIL
  4. SINGULAIR [Suspect]
     Active Substance: MONTELUKAST SODIUM
     Indication: ASTHMA
     Dosage: 10 MG, PRN
     Route: 048
  5. MIFLONIL [Concomitant]
     Active Substance: BUDESONIDE
     Dosage: STRENGTH: 400 MICROGRAM (2-0-2)
  6. XARELTO [Suspect]
     Active Substance: RIVAROXABAN
     Indication: ATRIAL FIBRILLATION
     Dosage: 20 MG, QD
     Route: 048
     Dates: start: 201406
  7. ISOPTIN [Concomitant]
     Active Substance: VERAPAMIL HYDROCHLORIDE
  8. INEGY [Concomitant]
     Active Substance: EZETIMIBE\SIMVASTATIN
     Dosage: STRENGTH10/20 UNIT NOT REPORTED.
  9. STAGID [Concomitant]
     Active Substance: METFORMIN PAMOATE
     Dosage: STRENGTH 700 MG(1-0-1)
  10. JANUVIA [Concomitant]
     Active Substance: SITAGLIPTIN PHOSPHATE
  11. SINGULAIR [Suspect]
     Active Substance: MONTELUKAST SODIUM
     Dosage: DOSAGE AT 5 AM ON 13-NOV-2014 AT 229 NG/ML
     Route: 048
     Dates: start: 20141113, end: 20141113
  12. VENTOLIN [Concomitant]
     Active Substance: ALBUTEROL SULFATE
  13. FORADIL [Concomitant]
     Active Substance: FORMOTEROL FUMARATE

REACTIONS (1)
  - Gingival bleeding [Recovered/Resolved]

NARRATIVE: CASE EVENT DATE: 20141112
